FAERS Safety Report 4364016-6 (Version None)
Quarter: 2004Q2

REPORT INFORMATION
  Report Type: 
  Country: None (occurrence: None)
  Receive Date: 20040525
  Receipt Date: 20040421
  Transmission Date: 20050107
  Serious: Yes (Hospitalization, Other)
  Sender: FDA-Public Use
  Company Number: 200411463JP

PATIENT
  Age: 60 Year
  Sex: Female
  Weight: 49 kg

DRUGS (13)
  1. ARAVA [Suspect]
     Indication: RHEUMATOID ARTHRITIS
     Route: 048
     Dates: start: 20031108, end: 20040321
  2. THYRADIN S [Concomitant]
     Indication: HYPOTHYROIDISM
     Route: 048
  3. PREDNISOLONE [Concomitant]
     Indication: RHEUMATOID ARTHRITIS
     Route: 048
  4. GASTER [Concomitant]
     Indication: GASTRIC ULCER
     Route: 048
  5. CLINORIL [Concomitant]
     Indication: RHEUMATOID ARTHRITIS
     Route: 048
  6. NORVASC [Concomitant]
     Indication: HYPERTENSION
     Route: 048
     Dates: start: 20031119, end: 20031216
  7. CALSLOT [Concomitant]
     Indication: HYPERTENSION
     Route: 048
     Dates: start: 20031217, end: 20031222
  8. FLUITRAN [Concomitant]
     Indication: HYPERTENSION
     Route: 048
     Dates: start: 20040121
  9. GASTROM [Concomitant]
  10. ALFAROL [Concomitant]
  11. THYRADIN S [Concomitant]
  12. JUVELA NICOTINATE [Concomitant]
  13. URSO [Concomitant]

REACTIONS (8)
  - ALANINE AMINOTRANSFERASE INCREASED [None]
  - ASPARTATE AMINOTRANSFERASE INCREASED [None]
  - BLOOD BILIRUBIN INCREASED [None]
  - CHROMATURIA [None]
  - DIARRHOEA [None]
  - HYPERTENSION [None]
  - JAUNDICE [None]
  - MALAISE [None]
